FAERS Safety Report 9888920 (Version 1)
Quarter: 2014Q1

REPORT INFORMATION
  Report Type: Spontaneous
  Country: US (occurrence: US)
  Receive Date: 20140211
  Receipt Date: 20140211
  Transmission Date: 20141002
  Serious: Yes (Hospitalization)
  Sender: FDA-Public Use
  Company Number: US-BAXTER-2014BAX006534

PATIENT
  Age: 39 Year
  Sex: Male

DRUGS (1)
  1. RIXUBIS [Suspect]
     Indication: FACTOR IX DEFICIENCY
     Route: 042

REACTIONS (2)
  - Lower limb fracture [Recovering/Resolving]
  - Fall [Recovering/Resolving]
